FAERS Safety Report 7151081-6 (Version None)
Quarter: 2010Q4

REPORT INFORMATION
  Report Type: 
  Country: None (occurrence: None)
  Receive Date: 20101210
  Receipt Date: 20101101
  Transmission Date: 20110411
  Serious: No
  Sender: FDA-Public Use
  Company Number: US-JNJFOC-20101101373

PATIENT
  Age: 32 Year
  Sex: Female

DRUGS (3)
  1. INVEGA SUSTENNA [Suspect]
     Indication: PRODUCT USED FOR UNKNOWN INDICATION
     Route: 030
  2. FANAPT [Concomitant]
  3. UNKNOWN MEDICATION [Concomitant]

REACTIONS (1)
  - BLOOD PROLACTIN INCREASED [None]
